FAERS Safety Report 24974418 (Version 3)
Quarter: 2025Q2

REPORT INFORMATION
  Report Type: Report from Study
  Country: US (occurrence: US)
  Receive Date: 20250217
  Receipt Date: 20250530
  Transmission Date: 20250717
  Serious: Yes (Death, Other)
  Sender: SYNDAX
  Company Number: US-SYNDAX PHARMACEUTICALS, INC.-2025US000120

PATIENT
  Sex: Female
  Weight: 84.757 kg

DRUGS (1)
  1. REVUFORJ [Suspect]
     Active Substance: REVUMENIB CITRATE
     Indication: Acute myeloid leukaemia
     Dosage: 110 MILLIGRAM, DAILY
     Route: 048
     Dates: start: 20250204, end: 20250408

REACTIONS (3)
  - Death [Fatal]
  - Adverse event [Unknown]
  - Drug ineffective [Unknown]
